FAERS Safety Report 22222765 (Version 2)
Quarter: 2023Q2

REPORT INFORMATION
  Report Type: Spontaneous
  Country: US (occurrence: None)
  Receive Date: 20230418
  Receipt Date: 20230517
  Transmission Date: 20230721
  Serious: Yes (Other)
  Sender: FDA-Public Use
  Company Number: 2023A084711

PATIENT
  Age: 56 Year
  Sex: Female
  Weight: 107.5 kg

DRUGS (1)
  1. PULMICORT FLEXHALER [Suspect]
     Active Substance: BUDESONIDE
     Indication: Asthma
     Dosage: 180.0UG UNKNOWN
     Route: 055
     Dates: start: 1997

REACTIONS (11)
  - Blood pressure increased [Unknown]
  - Respiratory syncytial virus infection [Unknown]
  - Headache [Unknown]
  - Sneezing [Unknown]
  - Asthma [Unknown]
  - Pneumonia [Unknown]
  - Bronchitis [Unknown]
  - Malaise [Unknown]
  - Atelectasis [Unknown]
  - Pleurisy [Unknown]
  - Pleural effusion [Unknown]

NARRATIVE: CASE EVENT DATE: 20090101
